FAERS Safety Report 7377509-4 (Version None)
Quarter: 2011Q1

REPORT INFORMATION
  Report Type: 
  Country: None (occurrence: None)
  Receive Date: 20110328
  Receipt Date: 20110321
  Transmission Date: 20110831
  Serious: No
  Sender: FDA-Public Use
  Company Number: US-PFIZER INC-2011062284

PATIENT
  Sex: Female
  Weight: 62.5 kg

DRUGS (1)
  1. PREMPRO [Suspect]
     Dosage: 0.3/1.5 MG, UNK
     Dates: start: 20101201

REACTIONS (1)
  - HIRSUTISM [None]
